FAERS Safety Report 5810887-3 (Version None)
Quarter: 2008Q3

REPORT INFORMATION
  Report Type: 
  Country: None (occurrence: None)
  Receive Date: 20080716
  Receipt Date: 20080702
  Transmission Date: 20090109
  Serious: Yes (Other)
  Sender: FDA-Public Use
  Company Number: PHHY2008GR13031

PATIENT
  Sex: Female

DRUGS (11)
  1. EUCREAS [Suspect]
     Dosage: UNK BID
  2. T4 [Concomitant]
     Dosage: 1X1
  3. DILATREND [Concomitant]
     Dosage: 6.25
  4. SALOSPIR [Concomitant]
     Dosage: 1X1
  5. CALCIROL [Concomitant]
     Dosage: 1X1
  6. LIPITOR [Concomitant]
     Dosage: 1X1
  7. FOSAMAX [Concomitant]
     Dosage: UNK
  8. SOLOSA [Concomitant]
     Dosage: 2 MG QHS
  9. GLUCOPHAGE [Concomitant]
     Dosage: 1 DF BID
  10. GLUCOPHAGE [Concomitant]
     Dosage: 1 DF, QD
  11. ACOMPLIA [Concomitant]
     Dosage: 1 DF, QD

REACTIONS (1)
  - HYPOGLYCAEMIA [None]
